FAERS Safety Report 7594012-7 (Version None)
Quarter: 2011Q3

REPORT INFORMATION
  Report Type: 
  Country: None (occurrence: None)
  Receive Date: 20110706
  Receipt Date: 20110630
  Transmission Date: 20111222
  Serious: Yes (Other)
  Sender: FDA-Public Use
  Company Number: US-PFIZER INC-2010006367

PATIENT
  Sex: Female

DRUGS (2)
  1. CHANTIX [Suspect]
     Indication: SMOKING CESSATION THERAPY
     Dosage: UNK
     Dates: start: 20080520, end: 20080818
  2. NEXIUM [Concomitant]
     Indication: PEPTIC ULCER
     Dosage: UNK
     Dates: start: 20080523, end: 20081001

REACTIONS (6)
  - DEPRESSION [None]
  - ABNORMAL BEHAVIOUR [None]
  - LOSS OF CONSCIOUSNESS [None]
  - AGGRESSION [None]
  - SUICIDAL IDEATION [None]
  - AMNESIA [None]
